FAERS Safety Report 15515708 (Version 1)
Quarter: 2018Q4

REPORT INFORMATION
  Report Type: Spontaneous
  Country: US (occurrence: US)
  Receive Date: 20181017
  Receipt Date: 20181017
  Transmission Date: 20190205
  Serious: Yes (Death)
  Sender: FDA-Public Use
  Company Number: US-ASTELLAS-2018US044317

PATIENT
  Age: 68 Year
  Sex: Female

DRUGS (1)
  1. TARCEVA [Suspect]
     Active Substance: ERLOTINIB HYDROCHLORIDE
     Indication: LUNG NEOPLASM MALIGNANT
     Dosage: BY MOUTH
     Route: 048
     Dates: start: 20160615, end: 20180810

REACTIONS (1)
  - Death [Fatal]

NARRATIVE: CASE EVENT DATE: 20181008
